FAERS Safety Report 15598527 (Version 1)
Quarter: 2018Q4

REPORT INFORMATION
  Report Type: Spontaneous
  Country: US (occurrence: US)
  Receive Date: 20181108
  Receipt Date: 20181108
  Transmission Date: 20190205
  Serious: No
  Sender: FDA-Public Use
  Company Number: US-SA-2018SA306083

PATIENT
  Age: 14 Year
  Sex: Female

DRUGS (2)
  1. KAOPECTATE [ATTAPULGITE] [Concomitant]
     Indication: DIARRHOEA
  2. ALLEGRA ALLERGY [Suspect]
     Active Substance: FEXOFENADINE HYDROCHLORIDE
     Indication: DIARRHOEA
     Dosage: UNK UNK, QD

REACTIONS (1)
  - Unevaluable event [Unknown]
